FAERS Safety Report 5024002-X (Version None)
Quarter: 2006Q2

REPORT INFORMATION
  Report Type: 
  Country: None (occurrence: None)
  Receive Date: 20060426
  Receipt Date: 20060323
  Transmission Date: 20061013
  Serious: Yes (Other)
  Sender: FDA-Public Use
  Company Number: 2006042353

PATIENT
  Age: 36 Year
  Sex: Female
  Weight: 56.6996 kg

DRUGS (2)
  1. LYRICA [Suspect]
     Indication: SURGERY
     Dosage: 150 MG (75 MG, 2 IN 1 D)
     Dates: start: 20060308, end: 20060319
  2. TOPAMAX [Concomitant]

REACTIONS (1)
  - AGITATION [None]
